FAERS Safety Report 7220387-4 (Version None)
Quarter: 2011Q1

REPORT INFORMATION
  Report Type: 
  Country: None (occurrence: None)
  Receive Date: 20110111
  Receipt Date: 20110104
  Transmission Date: 20110831
  Serious: Yes (Other)
  Sender: FDA-Public Use
  Company Number: US-TEVA-260478USA

PATIENT
  Sex: Female
  Weight: 48.124 kg

DRUGS (1)
  1. CLARAVIS [Suspect]
     Route: 048
     Dates: start: 20100824, end: 20101210

REACTIONS (1)
  - UNINTENDED PREGNANCY [None]
